FAERS Safety Report 4802737-9 (Version None)
Quarter: 2005Q4

REPORT INFORMATION
  Report Type: 
  Country: None (occurrence: None)
  Receive Date: 20051017
  Receipt Date: 20051017
  Transmission Date: 20060501
  Serious: Yes (Hospitalization)
  Sender: FDA-Public Use
  Company Number: None

PATIENT
  Age: 33 Year
  Sex: Female
  Weight: 58.9676 kg

DRUGS (4)
  1. VANCOMYCIN [Suspect]
     Indication: OSTEOMYELITIS
     Dosage: 1000MG   Q12  IV
     Route: 042
     Dates: start: 20050926, end: 20051010
  2. LEVOTHYROXINE [Concomitant]
  3. IBUPROFEN [Concomitant]
  4. LORTAB [Concomitant]

REACTIONS (4)
  - FEBRILE NEUTROPENIA [None]
  - LEUKOPENIA [None]
  - RASH GENERALISED [None]
  - RASH PRURITIC [None]
